FAERS Safety Report 6576858-7 (Version None)
Quarter: 2010Q1

REPORT INFORMATION
  Report Type: 
  Country: None (occurrence: None)
  Receive Date: 20100210
  Receipt Date: 20100208
  Transmission Date: 20100710
  Serious: Yes (Hospitalization)
  Sender: FDA-Public Use
  Company Number: A0802658A

PATIENT
  Age: 56 Year
  Sex: Male
  Weight: 147.3 kg

DRUGS (1)
  1. AVANDIA [Suspect]
     Indication: TYPE 2 DIABETES MELLITUS
     Dosage: 8MG PER DAY
     Route: 048
     Dates: start: 20040618, end: 20071007

REACTIONS (5)
  - CARDIAC FAILURE CONGESTIVE [None]
  - CARDIOVASCULAR DISORDER [None]
  - DECREASED ACTIVITY [None]
  - ECONOMIC PROBLEM [None]
  - QUALITY OF LIFE DECREASED [None]
